FAERS Safety Report 20178897 (Version 1)
Quarter: 2021Q4

REPORT INFORMATION
  Report Type: Spontaneous
  Country: GB (occurrence: GB)
  Receive Date: 20211214
  Receipt Date: 20211214
  Transmission Date: 20220303
  Serious: Yes (Other)
  Sender: FDA-Public Use
  Company Number: GB-NOVOPROD-874423

PATIENT
  Age: 14 Year
  Sex: Male

DRUGS (1)
  1. ESPEROCT [Suspect]
     Active Substance: ANTIHEMOPHILIC FACTOR, HUMAN RECOMBINANT
     Indication: Product used for unknown indication
     Dosage: 2000 IU
     Route: 065
     Dates: start: 20211115, end: 20211203

REACTIONS (3)
  - Haemorrhage [Not Recovered/Not Resolved]
  - Coagulation factor VIII level decreased [Unknown]
  - Anti-polyethylene glycol antibody present [Not Recovered/Not Resolved]
